FAERS Safety Report 10231502 (Version 1)
Quarter: 2014Q2

REPORT INFORMATION
  Report Type: Spontaneous
  Country: US (occurrence: US)
  Receive Date: 20140611
  Receipt Date: 20140611
  Transmission Date: 20141212
  Serious: Yes (Other)
  Sender: FDA-Public Use
  Company Number: US-ASTRAZENECA-2014SE39184

PATIENT
  Age: 78 Year
  Sex: Male
  Weight: 77.1 kg

DRUGS (7)
  1. TOPROL  XL [Suspect]
     Indication: CHEST PAIN
     Route: 048
     Dates: start: 1999, end: 2010
  2. TOPROL  XL [Suspect]
     Indication: MYALGIA
     Route: 048
     Dates: start: 1999, end: 2010
  3. TOPROL  XL [Suspect]
     Indication: ARRHYTHMIA
     Route: 048
     Dates: start: 1999, end: 2010
  4. TOPROL  XL [Suspect]
     Indication: CHEST PAIN
     Route: 048
     Dates: start: 2010
  5. TOPROL  XL [Suspect]
     Indication: MYALGIA
     Route: 048
     Dates: start: 2010
  6. TOPROL  XL [Suspect]
     Indication: ARRHYTHMIA
     Route: 048
     Dates: start: 2010
  7. LISINOPRIL [Concomitant]
     Indication: HYPERTENSION
     Route: 048

REACTIONS (8)
  - Cardiac valve disease [Unknown]
  - Cardiac failure [Unknown]
  - Electrocardiogram QT prolonged [Unknown]
  - Cardiac disorder [Recovered/Resolved]
  - Rebound effect [Recovered/Resolved]
  - Heart rate decreased [Recovered/Resolved]
  - Dizziness [Unknown]
  - Drug dose omission [Unknown]
